FAERS Safety Report 17113754 (Version 2)
Quarter: 2020Q1

REPORT INFORMATION
  Report Type: Spontaneous
  Country: US (occurrence: US)
  Receive Date: 20191205
  Receipt Date: 20200123
  Transmission Date: 20200409
  Serious: No
  Sender: FDA-Public Use
  Company Number: US-AMGEN-USASP2019201148

PATIENT
  Age: 64 Year
  Sex: Female
  Weight: 58.05 kg

DRUGS (1)
  1. REPATHA [Suspect]
     Active Substance: EVOLOCUMAB
     Indication: PRODUCT USED FOR UNKNOWN INDICATION
     Dosage: 140 MILLIGRAM, Q2WK
     Route: 065
     Dates: start: 20190828

REACTIONS (2)
  - Wrong technique in product usage process [Unknown]
  - Device failure [Unknown]

NARRATIVE: CASE EVENT DATE: 20191127
